FAERS Safety Report 4467188-8 (Version None)
Quarter: 2004Q4

REPORT INFORMATION
  Report Type: 
  Country: None (occurrence: None)
  Receive Date: 20041006
  Receipt Date: 20031231
  Transmission Date: 20050328
  Serious: Yes (Other)
  Sender: FDA-Public Use
  Company Number: FR-ABBOTT-04P-056-0246207-00

PATIENT
  Sex: Male

DRUGS (6)
  1. FENOFIBRATE [Suspect]
     Indication: HYPERCHOLESTEROLAEMIA
     Route: 048
     Dates: end: 20010701
  2. FENOFIBRATE [Suspect]
  3. ACETYLSALICYLATE LYSINE [Concomitant]
  4. TELMISARTAN [Concomitant]
  5. BUFLOMEDIL HYDROCHLORIDE [Concomitant]
  6. TRIMETAZIDINE HYDROCHLORIDE [Concomitant]

REACTIONS (2)
  - MYALGIA [None]
  - RENAL FAILURE [None]
